FAERS Safety Report 9193699 (Version 1)
Quarter: 2013Q1

REPORT INFORMATION
  Report Type: Spontaneous
  Country: US (occurrence: None)
  Receive Date: 20130325
  Receipt Date: 20130325
  Transmission Date: 20140127
  Serious: Yes (Other)
  Sender: FDA-Public Use
  Company Number: None

PATIENT
  Age: 40 Year
  Sex: Female
  Weight: 63.78 kg

DRUGS (1)
  1. BUPROPRION XL [Suspect]
     Indication: DEPRESSION
     Dates: start: 20110301, end: 20110726

REACTIONS (1)
  - Urticaria [None]
